FAERS Safety Report 17258057 (Version 1)
Quarter: 2020Q1

REPORT INFORMATION
  Report Type: Spontaneous
  Country: FR (occurrence: FR)
  Receive Date: 20200110
  Receipt Date: 20200110
  Transmission Date: 20200409
  Serious: Yes (Other)
  Sender: FDA-Public Use
  Company Number: FR-PFIZER INC-2020008054

PATIENT
  Age: 76 Year
  Sex: Male
  Weight: 101 kg

DRUGS (4)
  1. GENTAMICIN. [Concomitant]
     Active Substance: GENTAMICIN
     Indication: NECROTISING FASCIITIS
     Dosage: 320 MG, 1X/DAY
     Route: 042
     Dates: start: 20191116, end: 20191116
  2. DALACINE [Suspect]
     Active Substance: CLINDAMYCIN
     Indication: NECROTISING FASCIITIS
     Dosage: 2400 MG, 1X/DAY
     Route: 042
     Dates: start: 20191116, end: 20191120
  3. METRONIDAZOLE. [Concomitant]
     Active Substance: METRONIDAZOLE
     Indication: NECROTISING FASCIITIS
     Dosage: 1500 MG, 1X/DAY
     Route: 042
     Dates: start: 20191119
  4. VANCOMYCIN [Concomitant]
     Active Substance: VANCOMYCIN
     Indication: NECROTISING FASCIITIS
     Dosage: 2000 MG, 1X/DAY
     Route: 042
     Dates: start: 20191116, end: 20191122

REACTIONS (1)
  - Hepatocellular injury [Recovered/Resolved]

NARRATIVE: CASE EVENT DATE: 20191118
